APPROVED DRUG PRODUCT: OLUMIANT
Active Ingredient: BARICITINIB
Strength: 1MG
Dosage Form/Route: TABLET;ORAL
Application: A217585 | Product #001 | TE Code: AB
Applicant: MSN LABORATORIES PRIVATE LTD
Approved: Aug 8, 2025 | RLD: No | RS: No | Type: RX